FAERS Safety Report 9417753 (Version 1)
Quarter: 2013Q3

REPORT INFORMATION
  Report Type: Spontaneous
  Country: US (occurrence: US)
  Receive Date: 20130724
  Receipt Date: 20130724
  Transmission Date: 20140515
  Serious: Yes (Other)
  Sender: FDA-Public Use
  Company Number: US-GLAXOSMITHKLINE-A1033998A

PATIENT
  Age: 60 Year
  Sex: Male
  Weight: 109.1 kg

DRUGS (16)
  1. VOTRIENT [Suspect]
     Indication: PRODUCT USED FOR UNKNOWN INDICATION
     Dosage: 800MG PER DAY
     Route: 048
  2. VITAMIN B 12 [Concomitant]
  3. ALLOPURINOL [Concomitant]
  4. ASPIRIN [Concomitant]
  5. ATORVASTATIN [Concomitant]
  6. CITALOPRAM [Concomitant]
  7. DICLOFENAC [Concomitant]
  8. DIPHEN/ATROP [Concomitant]
  9. ENALAPRIL [Concomitant]
  10. FISH OIL [Concomitant]
  11. FOLIC ACID [Concomitant]
  12. FUROSEMIDE [Concomitant]
  13. IRON [Concomitant]
  14. LEVOTHYROXIN [Concomitant]
  15. METOPROLOL [Concomitant]
  16. POTASSIUM CHLORIDE [Concomitant]

REACTIONS (3)
  - Renal cancer [Not Recovered/Not Resolved]
  - Lung neoplasm malignant [Not Recovered/Not Resolved]
  - Drug ineffective [Unknown]
